FAERS Safety Report 5236480-1 (Version None)
Quarter: 2007Q1

REPORT INFORMATION
  Report Type: 
  Country: None (occurrence: None)
  Receive Date: 20070208
  Receipt Date: 20070123
  Transmission Date: 20070707
  Serious: Yes (Death, Life-Threatening, Hospitalization)
  Sender: FDA-Public Use
  Company Number: DSA_29292_2007

PATIENT
  Age: 61 Year
  Sex: Male

DRUGS (9)
  1. TEMESTA [Suspect]
     Dosage: DF ONCE PO
     Route: 048
     Dates: start: 20061010, end: 20061010
  2. EFFEXOR [Suspect]
     Dosage: DF ONCE PO
     Route: 048
     Dates: start: 20061010, end: 20061010
  3. BROMAZEPAM [Suspect]
     Dosage: DF ONCE PO
     Route: 048
     Dates: start: 20061010, end: 20061010
  4. PAROXETINE HCL [Suspect]
     Dosage: DF ONCE PO
     Route: 048
     Dates: start: 20061010, end: 20061010
  5. MITOTANE [Suspect]
     Dosage: DF ONCE PO
     Route: 048
     Dates: start: 20061010, end: 20061010
  6. DAFALGAN [Concomitant]
  7. HEXAQUINE [Concomitant]
  8. HYDROCORTISONE [Concomitant]
  9. FLUDROCORTISONE [Concomitant]

REACTIONS (14)
  - BACTERIAL INFECTION [None]
  - CARDIAC ARREST [None]
  - COMA [None]
  - COMPLETED SUICIDE [None]
  - HAEMORRHAGIC ANAEMIA [None]
  - HYPOXIA [None]
  - INTENTIONAL OVERDOSE [None]
  - LIVEDO RETICULARIS [None]
  - LUNG CONSOLIDATION [None]
  - PLEURAL EFFUSION [None]
  - PYOTHORAX [None]
  - RENAL FAILURE [None]
  - SALIVARY HYPERSECRETION [None]
  - SEPTIC SHOCK [None]
